FAERS Safety Report 16678876 (Version 3)
Quarter: 2019Q4

REPORT INFORMATION
  Report Type: Other
  Country: DE (occurrence: DE)
  Receive Date: 20190807
  Receipt Date: 20191112
  Transmission Date: 20200122
  Serious: Yes (Other)
  Sender: FDA-Public Use
  Company Number: DE-TOPROL ACQUISITION LLC-2019-TOP-000790

PATIENT
  Age: 43 Year
  Sex: Female
  Weight: 123 kg

DRUGS (26)
  1. GOLIMUMAB [Suspect]
     Active Substance: GOLIMUMAB
     Indication: PRODUCT USED FOR UNKNOWN INDICATION
     Dosage: UNK
     Dates: start: 2016
  2. PREDNISOLONE. [Suspect]
     Active Substance: PREDNISOLONE
     Indication: PRODUCT USED FOR UNKNOWN INDICATION
     Dosage: 25 MG, UNK
     Dates: start: 2013
  3. IBUPROFEN. [Suspect]
     Active Substance: IBUPROFEN
     Dosage: HEXAL
  4. SALBUTAMOL [Suspect]
     Active Substance: ALBUTEROL
     Indication: PRODUCT USED FOR UNKNOWN INDICATION
     Dosage: UNK
  5. IMPLANON [Suspect]
     Active Substance: ETONOGESTREL
     Indication: CONTRACEPTION
     Dosage: UNK
     Dates: start: 2000
  6. FLUTICASONE FUROATE W/VILANTEROL TRIFENATATE [Concomitant]
     Active Substance: FLUTICASONE FUROATE\VILANTEROL TRIFENATATE
     Indication: PRODUCT USED FOR UNKNOWN INDICATION
     Dosage: UNK (6 MONTHS BEFORE DIAGNOSIS)
  7. METOPROLOL STADA [Suspect]
     Active Substance: METOPROLOL TARTRATE
     Indication: PRODUCT USED FOR UNKNOWN INDICATION
     Dosage: STADA
  8. ESCITALOPRAM [Suspect]
     Active Substance: ESCITALOPRAM OXALATE
     Dosage: UNK, HEXAL
  9. PREDNISOLONE. [Suspect]
     Active Substance: PREDNISOLONE
     Dosage: UNK, STADA
  10. AMITRIPTYLINE HYDROCHLORIDE. [Suspect]
     Active Substance: AMITRIPTYLINE HYDROCHLORIDE
     Dosage: UNK
     Dates: start: 2017
  11. METOPROLOL TARTRATE. [Suspect]
     Active Substance: METOPROLOL TARTRATE
     Indication: PRODUCT USED FOR UNKNOWN INDICATION
     Dosage: UNK
     Route: 048
  12. ESCITALOPRAM [Suspect]
     Active Substance: ESCITALOPRAM OXALATE
     Dosage: UNK, MYLAN
  13. METOPROLOL STADA [Suspect]
     Active Substance: METOPROLOL TARTRATE
     Dosage: HEXAL
  14. ESCITALOPRAM [Suspect]
     Active Substance: ESCITALOPRAM OXALATE
     Dosage: UNK, STADA
  15. PREDNISOLONE. [Suspect]
     Active Substance: PREDNISOLONE
     Dosage: 2.5 MG, UNK
     Dates: start: 2013
  16. PANTOZOL [Suspect]
     Active Substance: PANTOPRAZOLE SODIUM
     Indication: PRODUCT USED FOR UNKNOWN INDICATION
     Dosage: UNK
     Dates: start: 2013
  17. IBUPROFEN. [Suspect]
     Active Substance: IBUPROFEN
     Dosage: HORMOSAN
  18. METOPROLOL SUCCINATE. [Suspect]
     Active Substance: METOPROLOL SUCCINATE
     Indication: PRODUCT USED FOR UNKNOWN INDICATION
     Dosage: UNK
     Route: 048
  19. ESCITALOPRAM [Suspect]
     Active Substance: ESCITALOPRAM OXALATE
     Indication: PRODUCT USED FOR UNKNOWN INDICATION
     Dosage: UNK
  20. PREDNISOLONE. [Suspect]
     Active Substance: PREDNISOLONE
     Dosage: UNK, JENAPHARM
  21. AMITRIPTYLINE HYDROCHLORIDE. [Suspect]
     Active Substance: AMITRIPTYLINE HYDROCHLORIDE
     Indication: DEPRESSION
     Dosage: UNK
     Dates: start: 2017
  22. IBUPROFEN. [Suspect]
     Active Substance: IBUPROFEN
     Indication: PRODUCT USED FOR UNKNOWN INDICATION
     Dosage: STADA
  23. IBUPROFEN. [Suspect]
     Active Substance: IBUPROFEN
     Dosage: UNK
  24. METOPROLOL STADA [Suspect]
     Active Substance: METOPROLOL TARTRATE
     Dosage: MYLAN
  25. SALBUTAMOL [Suspect]
     Active Substance: ALBUTEROL
     Dosage: UNK, STADA
  26. METHOTREXATE. [Suspect]
     Active Substance: METHOTREXATE
     Indication: PRODUCT USED FOR UNKNOWN INDICATION
     Dosage: 1 DF, WEEKLY
     Dates: start: 2013

REACTIONS (4)
  - Deep vein thrombosis [Unknown]
  - Myalgia [Unknown]
  - Muscular weakness [Unknown]
  - Discomfort [Unknown]

NARRATIVE: CASE EVENT DATE: 20190222
